FAERS Safety Report 17501992 (Version 1)
Quarter: 2020Q1

REPORT INFORMATION
  Report Type: Spontaneous
  Country: BF (occurrence: BF)
  Receive Date: 20200305
  Receipt Date: 20200305
  Transmission Date: 20200409
  Serious: Yes (Death, Other)
  Sender: FDA-Public Use
  Company Number: NVSC2020BF060959

PATIENT
  Age: 46 Year
  Sex: Male

DRUGS (1)
  1. GLIVEC [Suspect]
     Active Substance: IMATINIB MESYLATE
     Indication: CHRONIC MYELOID LEUKAEMIA
     Dosage: 100 MG (4X100MG)
     Route: 065

REACTIONS (8)
  - Skin lesion [Fatal]
  - Remission not achieved [Fatal]
  - Diarrhoea [Fatal]
  - Death [Fatal]
  - Abdominal pain [Fatal]
  - Splenomegaly [Fatal]
  - Chronic myeloid leukaemia [Fatal]
  - Hepatomegaly [Fatal]

NARRATIVE: CASE EVENT DATE: 20191104
